FAERS Safety Report 21193569 (Version 4)
Quarter: 2022Q3

REPORT INFORMATION
  Report Type: Spontaneous
  Country: US (occurrence: US)
  Receive Date: 20220810
  Receipt Date: 20220913
  Transmission Date: 20221027
  Serious: No
  Sender: FDA-Public Use
  Company Number: US-TOLMAR, INC.-22US035949

PATIENT
  Age: 82 Year
  Sex: Female

DRUGS (2)
  1. BETAMETHASONE DIPROPIONATE\CALCIPOTRIENE [Suspect]
     Active Substance: BETAMETHASONE DIPROPIONATE\CALCIPOTRIENE
     Indication: Product used for unknown indication
     Dosage: UNK
  2. BETAMETHASONE DIPROPIONATE\CALCIPOTRIENE [Suspect]
     Active Substance: BETAMETHASONE DIPROPIONATE\CALCIPOTRIENE
     Dosage: UNK
     Dates: start: 20220726

REACTIONS (4)
  - Wrong technique in product usage process [Unknown]
  - Hypoacusis [Not Recovered/Not Resolved]
  - Intentional product misuse [Unknown]
  - Product container issue [Unknown]

NARRATIVE: CASE EVENT DATE: 20220726
